FAERS Safety Report 21228341 (Version 2)
Quarter: 2022Q4

REPORT INFORMATION
  Report Type: Spontaneous
  Country: FR (occurrence: FR)
  Receive Date: 20220818
  Receipt Date: 20221103
  Transmission Date: 20230112
  Serious: Yes (Hospitalization)
  Sender: FDA-Public Use
  Company Number: None

PATIENT
  Age: 90 Year
  Sex: Male
  Weight: 64 kg

DRUGS (4)
  1. ATORVASTATIN [Suspect]
     Active Substance: ATORVASTATIN
     Indication: Acute myocardial infarction
     Dosage: UNIT DOSE: 80 MG, FREQUENCY TIME-1 DAY, DURATION-60 DAYS
     Dates: start: 20220505, end: 20220704
  2. CLOPIDOGREL HYDROCHLORIDE [Suspect]
     Active Substance: CLOPIDOGREL HYDROCHLORIDE
     Indication: Acute myocardial infarction
     Dosage: UNIT DOSE: 75 MG, FREQUENCY TIME-1 DAY, DURATION-62 DAYS
     Dates: start: 20220505, end: 20220706
  3. VYNDAMAX [Suspect]
     Active Substance: TAFAMIDIS
     Indication: Cardiac amyloidosis
     Dosage: FORM STRENGTH:  61 MG, UNIT DOSE: 61 MG, FREQUENCY TIME-1 DAY, DURATION-41 DAYS
     Dates: start: 20220524, end: 20220704
  4. ELIQUIS [Suspect]
     Active Substance: APIXABAN
     Indication: Atrial fibrillation
     Dosage: FORM STRENGTH:  2.5 MG, UNIT DOSE: 5 MG, FREQUENCY TIME-1 DAY, DURATION-42 DAYS
     Dates: start: 20220524, end: 20220705

REACTIONS (1)
  - Mixed liver injury [Recovering/Resolving]

NARRATIVE: CASE EVENT DATE: 20220628
